FAERS Safety Report 7686401-7 (Version None)
Quarter: 2011Q3

REPORT INFORMATION
  Report Type: 
  Country: None (occurrence: None)
  Receive Date: 20110816
  Receipt Date: 20110803
  Transmission Date: 20111222
  Serious: Yes (Other)
  Sender: FDA-Public Use
  Company Number: CA-ELI_LILLY_AND_COMPANY-CA201108001117

PATIENT
  Sex: Female

DRUGS (7)
  1. ASPIRIN [Concomitant]
  2. CLONAZEPAM [Concomitant]
  3. ZYPREXA ZYDIS [Suspect]
     Dosage: 5 MG, EACH EVENING
  4. ZYPREXA [Suspect]
     Dosage: 7.5 MG, EACH EVENING
  5. ZYPREXA ZYDIS [Suspect]
     Dosage: 10 MG, QD
     Dates: start: 20060606
  6. ZYPREXA [Suspect]
     Dosage: 5 MG, UNK
  7. CELEXA [Concomitant]

REACTIONS (5)
  - COELIAC DISEASE [None]
  - TYPE 2 DIABETES MELLITUS [None]
  - OVARIAN CANCER [None]
  - VISUAL ACUITY REDUCED [None]
  - HYPERLIPIDAEMIA [None]
